FAERS Safety Report 24082053 (Version 2)
Quarter: 2024Q4

REPORT INFORMATION
  Report Type: Spontaneous
  Country: US (occurrence: US)
  Receive Date: 20240712
  Receipt Date: 20241018
  Transmission Date: 20250115
  Serious: No
  Sender: ROCHE
  Company Number: US-ROCHE-3567571

PATIENT
  Sex: Male

DRUGS (1)
  1. XOLAIR [Suspect]
     Active Substance: OMALIZUMAB
     Indication: Asthma
     Route: 058
     Dates: start: 202404

REACTIONS (6)
  - Hypoaesthesia [Unknown]
  - Pruritus [Unknown]
  - Cough [Unknown]
  - Dyspnoea [Unknown]
  - Seasonal allergy [Unknown]
  - Oropharyngeal discomfort [Unknown]
